FAERS Safety Report 23910795 (Version 1)
Quarter: 2024Q2

REPORT INFORMATION
  Report Type: Spontaneous
  Country: US (occurrence: US)
  Receive Date: 20240528
  Receipt Date: 20240528
  Transmission Date: 20240716
  Serious: No
  Sender: FDA-Public Use
  Company Number: US-AVADEL CNS PHARMACEUTICALS, LLC-2024AVA00403

PATIENT
  Sex: Female

DRUGS (1)
  1. LUMRYZ [Suspect]
     Active Substance: SODIUM OXYBATE
     Dosage: 4.5 G

REACTIONS (5)
  - Initial insomnia [Unknown]
  - Nocturia [Unknown]
  - Dizziness [Unknown]
  - Nausea [Unknown]
  - Drug effect less than expected [Unknown]
